FAERS Safety Report 13211847 (Version 3)
Quarter: 2017Q3

REPORT INFORMATION
  Report Type: Spontaneous
  Country: US (occurrence: US)
  Receive Date: 20170210
  Receipt Date: 20170712
  Transmission Date: 20171127
  Serious: Yes (Other)
  Sender: FDA-Public Use
  Company Number: US-BAYER-2017-020926

PATIENT
  Age: 18 Year
  Sex: Male
  Weight: 110.2 kg

DRUGS (4)
  1. KOGENATE FS [Suspect]
     Active Substance: ANTIHEMOPHILIC FACTOR, HUMAN RECOMBINANT
     Indication: FACTOR VIII DEFICIENCY
     Dosage: 3500 U, OW (~3,500 UNITS (+/-10%) ON FRIDAYS)
     Route: 042
     Dates: start: 201304
  2. KOGENATE FS [Suspect]
     Active Substance: ANTIHEMOPHILIC FACTOR, HUMAN RECOMBINANT
     Indication: HAEMORRHAGE
     Dosage: 3500 U, OW (~3,500 UNITS (+/-10%) ON FRIDAYS)
     Route: 042
  3. ALBUTEROL. [Concomitant]
     Active Substance: ALBUTEROL
  4. ESOMEPRAZOLE [Concomitant]
     Active Substance: ESOMEPRAZOLE

REACTIONS (3)
  - Haemorrhage [None]
  - Haemorrhage [None]
  - Ingrowing nail [Unknown]

NARRATIVE: CASE EVENT DATE: 201705
